FAERS Safety Report 17025427 (Version 1)
Quarter: 2019Q4

REPORT INFORMATION
  Report Type: Spontaneous
  Country: US (occurrence: US)
  Receive Date: 20191112
  Receipt Date: 20191112
  Transmission Date: 20200122
  Serious: Yes (Life-Threatening, Other)
  Sender: FDA-Public Use
  Company Number: None

PATIENT
  Age: 32 Year
  Sex: Male
  Weight: 79.5 kg

DRUGS (4)
  1. DIPHENHYDRAMINE 50MG CAPSULE PO [Concomitant]
     Dates: start: 20191009, end: 20191009
  2. HYDROCORTISONE 100MG IVP [Concomitant]
     Dates: start: 20191009, end: 20191009
  3. ACETOMINOPHEN 650 TABLET PO [Concomitant]
     Dates: start: 20191009, end: 20191009
  4. PAGASPARGASE [Suspect]
     Active Substance: PEGASPARGASE
     Indication: ACUTE LYMPHOCYTIC LEUKAEMIA
     Dosage: ?          OTHER FREQUENCY:ONCE;?
     Route: 042
     Dates: start: 20191009, end: 20191009

REACTIONS (4)
  - Nausea [None]
  - Flushing [None]
  - Dizziness [None]
  - Chest discomfort [None]

NARRATIVE: CASE EVENT DATE: 20191009
